FAERS Safety Report 8267015-7 (Version None)
Quarter: 2012Q2

REPORT INFORMATION
  Report Type: 
  Country: None (occurrence: None)
  Receive Date: 20120405
  Receipt Date: 20120405
  Transmission Date: 20120825
  Serious: Yes (Other)
  Sender: FDA-Public Use
  Company Number: None

PATIENT
  Sex: Male
  Weight: 98.8842 kg

DRUGS (2)
  1. PRAVASTATIN [Suspect]
     Dosage: Q DAY PO
     Route: 048
     Dates: start: 20041001, end: 20041201
  2. PRAVASTATIN [Suspect]
     Indication: HYPERLIPIDAEMIA
     Dosage: Q DAY PO
     Route: 048
     Dates: start: 20040301, end: 20041001

REACTIONS (6)
  - SWELLING [None]
  - LIVER FUNCTION TEST ABNORMAL [None]
  - BLOOD PRESSURE INCREASED [None]
  - FATIGUE [None]
  - PRODUCT SUBSTITUTION ISSUE [None]
  - WEIGHT INCREASED [None]
